FAERS Safety Report 4698028-X (Version None)
Quarter: 2005Q2

REPORT INFORMATION
  Report Type: 
  Country: None (occurrence: None)
  Receive Date: 20050623
  Receipt Date: 20050614
  Transmission Date: 20051028
  Serious: Yes (Hospitalization)
  Sender: FDA-Public Use
  Company Number: FRWYE741114JUN05

PATIENT
  Age: 49 Year
  Sex: Male

DRUGS (3)
  1. ENBREL [Suspect]
     Indication: RHEUMATOID ARTHRITIS
     Dosage: 50 MG WEEKLY
     Route: 058
     Dates: start: 20030617, end: 20050312
  2. CORTANCYL [Concomitant]
     Dosage: UNKNOWN
     Route: 048
  3. METHOTREXATE [Concomitant]

REACTIONS (10)
  - CYTOLYTIC HEPATITIS [None]
  - HYPONATRAEMIA [None]
  - HYPOTENSION [None]
  - LEUKOPENIA [None]
  - LIVEDO RETICULARIS [None]
  - NEUTROPENIA [None]
  - PLEURISY [None]
  - PNEUMONIA PNEUMOCOCCAL [None]
  - RENAL FAILURE [None]
  - THROMBOCYTOPENIA [None]
